FAERS Safety Report 4297079-7 (Version None)
Quarter: 2004Q1

REPORT INFORMATION
  Report Type: 
  Country: None (occurrence: None)
  Receive Date: 20040213
  Receipt Date: 20040203
  Transmission Date: 20041129
  Serious: Yes (Death)
  Sender: FDA-Public Use
  Company Number: US065882

PATIENT
  Age: 77 Year
  Sex: Male

DRUGS (8)
  1. ETANERCEPT [Suspect]
     Indication: PULMONARY FIBROSIS
     Dosage: 25 MG, 2 IN 1 WEEK, SC
     Route: 058
     Dates: start: 20031003, end: 20040105
  2. RANITIDINE HYDROCHLORIDE [Concomitant]
  3. PANTOPRAZOLE SODIUM [Concomitant]
  4. FUROSEMIDE [Concomitant]
  5. SIMVASTATIN [Concomitant]
  6. ACETAMINOPHEN [Concomitant]
  7. LIBRAX [Concomitant]
  8. SODIUM CHLORIDE INJ [Concomitant]

REACTIONS (3)
  - DISEASE PROGRESSION [None]
  - INTERSTITIAL LUNG DISEASE [None]
  - PULMONARY HYPERTENSION [None]
